FAERS Safety Report 4555006-9 (Version None)
Quarter: 2004Q4

REPORT INFORMATION
  Report Type: 
  Country: None (occurrence: None)
  Receive Date: 20041217
  Receipt Date: 20040825
  Transmission Date: 20050328
  Serious: No
  Sender: FDA-Public Use
  Company Number: 2004-BP-07267BP

PATIENT
  Sex: Female

DRUGS (6)
  1. SPIRIVA [Suspect]
     Indication: CHRONIC OBSTRUCTIVE AIRWAYS DISEASE
     Dosage: 18 MCG (18 MCG) IH
     Dates: start: 20040701
  2. ALBUTEROL [Concomitant]
  3. ADVAIR (SERETIDE MITE) [Concomitant]
  4. WELLBATRIN (BUPROPION HYDROCHLORIDE) [Concomitant]
  5. XANAX [Concomitant]
  6. GUAIFENESIN [Concomitant]

REACTIONS (2)
  - PAIN IN EXTREMITY [None]
  - PELVIC PAIN [None]
